FAERS Safety Report 23571235 (Version 3)
Quarter: 2024Q1

REPORT INFORMATION
  Report Type: Spontaneous
  Country: US (occurrence: US)
  Receive Date: 20240227
  Receipt Date: 20240307
  Transmission Date: 20240409
  Serious: No
  Sender: FDA-Public Use
  Company Number: US-SANDOZ-SDZ2024US020523

PATIENT
  Sex: Female

DRUGS (1)
  1. ALBUTEROL SULFATE [Suspect]
     Active Substance: ALBUTEROL SULFATE
     Indication: Asthma
     Dosage: PATIENT USES 1 PUFF TWICE DAILY FOR ASTHMA. THEY MENTIONED THEY ARE PRESCRIBED TO USE IT MORE OFTEN
     Route: 048
     Dates: start: 20240202

REACTIONS (4)
  - Wheezing [Unknown]
  - Dyspnoea [Unknown]
  - Product use issue [Unknown]
  - Off label use [Unknown]
